FAERS Safety Report 15632324 (Version 6)
Quarter: 2020Q3

REPORT INFORMATION
  Report Type: Spontaneous
  Country: GR (occurrence: GR)
  Receive Date: 20181119
  Receipt Date: 20200928
  Transmission Date: 20201102
  Serious: Yes (Other)
  Sender: FDA-Public Use
  Company Number: GR-PFIZER INC-2018468692

PATIENT
  Age: 89 Year
  Sex: Female

DRUGS (4)
  1. METHYLPREDNISOLONE. [Suspect]
     Active Substance: METHYLPREDNISOLONE
     Indication: GIANT CELL ARTERITIS
     Dosage: 32 MG, DAILY
     Route: 048
  2. METHOTREXATE. [Concomitant]
     Active Substance: METHOTREXATE
     Dosage: UNK
  3. AZATHIOPRINE. [Concomitant]
     Active Substance: AZATHIOPRINE
     Dosage: UNK
  4. METHYLPREDNISOLONE SODIUM SUCCINATE. [Suspect]
     Active Substance: METHYLPREDNISOLONE SODIUM SUCCINATE
     Indication: GIANT CELL ARTERITIS
     Dosage: 1 G, (FOR 3 CONSECUTIVE DAYS)
     Route: 042

REACTIONS (10)
  - Leukopenia [Unknown]
  - Spinal fracture [Unknown]
  - Off label use [Unknown]
  - Diabetes mellitus [Recovering/Resolving]
  - Cataract [Unknown]
  - Disease recurrence [Unknown]
  - Product use in unapproved indication [Unknown]
  - Diabetic neuropathy [Unknown]
  - Diabetic foot [Unknown]
  - Osteoporosis [Unknown]
